FAERS Safety Report 23861552 (Version 1)
Quarter: 2024Q2

REPORT INFORMATION
  Report Type: Other
  Country: US (occurrence: None)
  Receive Date: 20240516
  Receipt Date: 20240516
  Transmission Date: 20240715
  Serious: No
  Sender: FDA-Public Use
  Company Number: US-ROCHE-3564409

PATIENT
  Age: 36 Year
  Sex: Female

DRUGS (2)
  1. OCREVUS [Suspect]
     Active Substance: OCRELIZUMAB
     Indication: Relapsing multiple sclerosis
     Dosage: PREVIOUS DATE OF TREATMENT = 13/JUN/2023, ANTICIPATED DATE OF TREATMENT = 15/MAY/2023
     Route: 042
     Dates: start: 202301
  2. LISINOPRIL [Concomitant]
     Active Substance: LISINOPRIL

REACTIONS (4)
  - COVID-19 [Unknown]
  - Pharyngitis streptococcal [Unknown]
  - Respiratory syncytial virus infection [Unknown]
  - Illness [Unknown]

NARRATIVE: CASE EVENT DATE: 20231201
